FAERS Safety Report 21480048 (Version 7)
Quarter: 2023Q2

REPORT INFORMATION
  Report Type: Spontaneous
  Country: US (occurrence: US)
  Receive Date: 20221019
  Receipt Date: 20230610
  Transmission Date: 20230722
  Serious: Yes (Other)
  Sender: FDA-Public Use
  Company Number: US-NOVARTISPH-NVSC2022US235108

PATIENT
  Sex: Male

DRUGS (1)
  1. ENTRESTO [Suspect]
     Active Substance: SACUBITRIL\VALSARTAN
     Indication: Product used for unknown indication
     Dosage: UNK
     Route: 065

REACTIONS (7)
  - Cardiac failure [Recovering/Resolving]
  - Post-acute COVID-19 syndrome [Recovering/Resolving]
  - Somnolence [Unknown]
  - Gait disturbance [Unknown]
  - Lethargy [Unknown]
  - Asthenia [Unknown]
  - Fatigue [Unknown]
